FAERS Safety Report 25128698 (Version 1)
Quarter: 2025Q1

REPORT INFORMATION
  Report Type: Spontaneous
  Country: KR (occurrence: KR)
  Receive Date: 20250327
  Receipt Date: 20250327
  Transmission Date: 20250409
  Serious: Yes (Other)
  Sender: ROCHE
  Company Number: KR-ROCHE-10000240305

PATIENT
  Age: 70 Year
  Sex: Male

DRUGS (2)
  1. TECENTRIQ [Suspect]
     Active Substance: ATEZOLIZUMAB
     Indication: Non-small cell lung cancer
     Route: 065
     Dates: start: 202402, end: 202501
  2. CISPLATIN [Concomitant]
     Active Substance: CISPLATIN
     Indication: Chronic kidney disease

REACTIONS (5)
  - Cough [Unknown]
  - Off label use [Unknown]
  - Metastatic neoplasm [Unknown]
  - Lung cancer metastatic [Unknown]
  - Adenocarcinoma [Unknown]
